FAERS Safety Report 7178845-7 (Version None)
Quarter: 2010Q4

REPORT INFORMATION
  Report Type: 
  Country: None (occurrence: None)
  Receive Date: 20101217
  Receipt Date: 20101217
  Transmission Date: 20110411
  Serious: Yes (Life-Threatening, Hospitalization)
  Sender: FDA-Public Use
  Company Number: None

PATIENT
  Sex: Male
  Weight: 106.5953 kg

DRUGS (1)
  1. ADDERALL 10 [Suspect]
     Dosage: 20 MG ONCE A DAY

REACTIONS (1)
  - RESPIRATORY DISORDER [None]
